FAERS Safety Report 4700031-8 (Version None)
Quarter: 2005Q2

REPORT INFORMATION
  Report Type: 
  Country: None (occurrence: None)
  Receive Date: 20050623
  Receipt Date: 20050609
  Transmission Date: 20051028
  Serious: Yes (Hospitalization)
  Sender: FDA-Public Use
  Company Number: 200410843BCC

PATIENT
  Age: 75 Year
  Sex: Female

DRUGS (3)
  1. ALEVE [Suspect]
     Indication: DEMENTIA ALZHEIMER'S TYPE
     Dosage: BID, ORAL
     Route: 048
     Dates: start: 20030207, end: 20031212
  2. ASPIRIN [Concomitant]
     Indication: PROPHYLAXIS
  3. ACTIVELLE [Concomitant]

REACTIONS (4)
  - CEREBRAL HAEMORRHAGE [None]
  - CEREBROVASCULAR ACCIDENT [None]
  - NIGHT SWEATS [None]
  - URINARY TRACT INFECTION [None]
